FAERS Safety Report 8901119 (Version 1)
Quarter: 2012Q4

REPORT INFORMATION
  Report Type: 
  Country: CH (occurrence: CH)
  Receive Date: 20121109
  Receipt Date: 20121109
  Transmission Date: 20130627
  Serious: Yes (Hospitalization, Other)
  Sender: FDA-Public Use
  Company Number: CH-ACTELION-A-CH2012-73958

PATIENT
  Age: 56 Year
  Sex: Male
  Weight: 75 kg

DRUGS (21)
  1. TRACLEER [Suspect]
     Indication: PULMONARY ARTERIAL HYPERTENSION
     Dosage: 125 mg, bid
     Route: 048
     Dates: start: 2012
  2. VFEND [Suspect]
     Dosage: 200 mg, bid
     Route: 048
     Dates: start: 20120706, end: 20120803
  3. VFEND [Suspect]
     Dosage: 400 mg, qd
     Route: 040
     Dates: start: 20120704, end: 20120705
  4. VFEND [Suspect]
     Dosage: 300 mg, bid
     Route: 048
     Dates: start: 20120803, end: 20120809
  5. VFEND [Suspect]
     Dosage: 400 mg, bid
     Route: 048
     Dates: start: 20120810, end: 20121016
  6. MOVICOL [Suspect]
     Dosage: UNK
     Route: 048
     Dates: start: 201207
  7. FRESUBIN [Suspect]
     Dosage: UNK UNK, tid
     Route: 048
     Dates: start: 201207
  8. NOVALGIN [Suspect]
     Dosage: 20 Gtt, tid
     Route: 048
  9. MARCOUMAR [Concomitant]
     Dosage: 3 mg, UNK
     Route: 048
     Dates: start: 2010
  10. FRAGMIN [Concomitant]
     Dosage: 15000 I/U, UNK
     Route: 058
     Dates: start: 2012
  11. DOSPIR [Concomitant]
     Dosage: UNK UNK, qid
     Route: 045
     Dates: start: 201207
  12. SPIRIVA [Concomitant]
     Dosage: 18 ?g, Q1hour
     Route: 055
     Dates: start: 2012
  13. SERETIDE [Concomitant]
     Dosage: UNK, bid
     Route: 055
     Dates: start: 201012
  14. METOLAZONE [Concomitant]
     Dosage: 5 mg, qd
     Route: 048
     Dates: start: 201207
  15. METOLAZONE [Concomitant]
     Dosage: UNK
     Dates: start: 201207
  16. WELLBUTRIN [Concomitant]
     Dosage: 150 mg, bid
     Route: 048
     Dates: start: 2012
  17. STILNOX [Concomitant]
     Dosage: 10 mg, qd
     Route: 048
     Dates: start: 201207
  18. PANTOZOL [Concomitant]
     Dosage: 40 mg, qd
     Route: 048
     Dates: start: 201012
  19. PRADIF [Concomitant]
     Dosage: 400 ?g, qd
     Route: 048
     Dates: start: 201207
  20. DAFALGAN [Concomitant]
     Dosage: 1 g, bid
     Route: 048
     Dates: start: 201207
  21. REMERON [Suspect]
     Dosage: 30 mg, qd
     Route: 048
     Dates: start: 2010

REACTIONS (4)
  - Drug level below therapeutic [Recovered/Resolved]
  - Bronchopulmonary aspergillosis [Unknown]
  - Biopsy lung abnormal [Unknown]
  - Pulmonary cavitation [Unknown]
